FAERS Safety Report 7989381-X (Version None)
Quarter: 2011Q4

REPORT INFORMATION
  Report Type: 
  Country: None (occurrence: None)
  Receive Date: 20111216
  Receipt Date: 20111216
  Transmission Date: 20120403
  Serious: No
  Sender: FDA-Public Use
  Company Number: None

PATIENT
  Age: 19 Year
  Sex: Male

DRUGS (1)
  1. AZITHROMYCIN [Suspect]
     Dates: start: 20100407, end: 20100411

REACTIONS (9)
  - JAUNDICE [None]
  - HEPATIC STEATOSIS [None]
  - PNEUMONIA [None]
  - DRUG ERUPTION [None]
  - EOSINOPHILIA [None]
  - NAUSEA [None]
  - VOMITING [None]
  - RASH PAPULAR [None]
  - HEPATOMEGALY [None]
